FAERS Safety Report 8242812-2 (Version None)
Quarter: 2012Q1

REPORT INFORMATION
  Report Type: 
  Country: None (occurrence: None)
  Receive Date: 20120329
  Receipt Date: 20120319
  Transmission Date: 20120608
  Serious: Yes (Hospitalization, Other)
  Sender: FDA-Public Use
  Company Number: PHHY2012CH019945

PATIENT
  Sex: Female

DRUGS (9)
  1. FENTANYL [Interacting]
     Dosage: UNK UKN, UNK
  2. PHENYLEPHRINE HCL [Suspect]
     Dosage: UNK UKN, UNK
  3. LIDOCAINE [Interacting]
     Dosage: UNK UKN, UNK
  4. METHADONE HCL [Interacting]
     Dosage: UNK UKN, UNK
  5. CLOZAPINE [Interacting]
     Dosage: 500 MG, UNK
  6. PROPOFOL [Interacting]
     Dosage: UNK UKN, UNK
  7. EPHEDRINE [Suspect]
     Dosage: UNK UKN, UNK
  8. CLOZAPINE [Interacting]
     Dosage: 200 MG,DAILY
  9. TACRINE [Suspect]
     Dosage: UNK UKN, UNK

REACTIONS (11)
  - VERTIGO [None]
  - PARESIS CRANIAL NERVE [None]
  - TONGUE DISORDER [None]
  - OVERDOSE [None]
  - SOMNOLENCE [None]
  - PARESIS [None]
  - DISORIENTATION [None]
  - ANTIPSYCHOTIC DRUG LEVEL INCREASED [None]
  - DISTURBANCE IN ATTENTION [None]
  - DYSARTHRIA [None]
  - MIOSIS [None]
